FAERS Safety Report 24177147 (Version 1)
Quarter: 2024Q3

REPORT INFORMATION
  Report Type: Report from Study
  Country: SA (occurrence: None)
  Receive Date: 20240806
  Receipt Date: 20240806
  Transmission Date: 20241016
  Serious: Yes (Other)
  Sender: UNICHEM
  Company Number: SA-Unichem Pharmaceuticals (USA) Inc-UCM202407-000955

PATIENT
  Sex: Male

DRUGS (1)
  1. TRAMADOL HCL [Suspect]
     Active Substance: TRAMADOL HYDROCHLORIDE
     Indication: Pain
     Dosage: UNKNOWN

REACTIONS (3)
  - Medical device change [Unknown]
  - Seizure [Unknown]
  - Drug dependence [Unknown]
